FAERS Safety Report 23308828 (Version 1)
Quarter: 2023Q4

REPORT INFORMATION
  Report Type: Spontaneous
  Country: GB (occurrence: None)
  Receive Date: 20231218
  Receipt Date: 20231218
  Transmission Date: 20240109
  Serious: Yes (Death)
  Sender: FDA-Public Use
  Company Number: 2023A284332

PATIENT
  Age: 83 Year
  Sex: Female

DRUGS (8)
  1. ANDEXANET ALFA [Suspect]
     Active Substance: ANDEXANET ALFA
     Indication: Surgery
     Dosage: 400MG PRE-THEATRE, 480MG INTRA-OPREATIVELY
     Dates: start: 20221230
  2. APIXABAN [Concomitant]
     Active Substance: APIXABAN
  3. GENTAMICIN [Concomitant]
     Active Substance: GENTAMICIN
  4. METRONIDAZOLE [Concomitant]
     Active Substance: METRONIDAZOLE
  5. MORPHINE [Concomitant]
     Active Substance: MORPHINE
  6. ONDANSETRON [Concomitant]
     Active Substance: ONDANSETRON
  7. ACETAMINOPHEN [Concomitant]
     Active Substance: ACETAMINOPHEN
  8. TEICOPLANIN [Concomitant]
     Active Substance: TEICOPLANIN

REACTIONS (1)
  - Graft thrombosis [Fatal]

NARRATIVE: CASE EVENT DATE: 20221231
